FAERS Safety Report 14510276 (Version 1)
Quarter: 2018Q1

REPORT INFORMATION
  Report Type: Spontaneous
  Country: US (occurrence: US)
  Receive Date: 20180209
  Receipt Date: 20180209
  Transmission Date: 20180509
  Serious: No
  Sender: FDA-Public Use
  Company Number: US-TEVA-2018-US-848479

PATIENT
  Sex: Female

DRUGS (1)
  1. AVIANE [Suspect]
     Active Substance: ETHINYL ESTRADIOL\LEVONORGESTREL
     Indication: MENORRHAGIA
     Dosage: DOSE STRENGTH:  0.1/0.02
     Route: 065
     Dates: start: 2018

REACTIONS (3)
  - Menstruation irregular [Unknown]
  - Product substitution error [Unknown]
  - Inappropriate schedule of drug administration [Unknown]
